FAERS Safety Report 7191489-6 (Version None)
Quarter: 2010Q4

REPORT INFORMATION
  Report Type: 
  Country: None (occurrence: None)
  Receive Date: 20101223
  Receipt Date: 20101217
  Transmission Date: 20110411
  Serious: Yes (Life-Threatening, Hospitalization)
  Sender: FDA-Public Use
  Company Number: JP-ROCHE-591435

PATIENT
  Sex: Male
  Weight: 44.5 kg

DRUGS (24)
  1. ACTEMRA [Suspect]
     Indication: RHEUMATOID ARTHRITIS
     Route: 041
     Dates: start: 20080827, end: 20080827
  2. ACTEMRA [Suspect]
     Route: 041
     Dates: start: 20080930, end: 20080930
  3. ACTEMRA [Suspect]
     Route: 041
     Dates: start: 20081024, end: 20081024
  4. ACTEMRA [Suspect]
     Route: 041
     Dates: start: 20081119, end: 20081119
  5. ACTEMRA [Suspect]
     Route: 041
     Dates: start: 20081217, end: 20081217
  6. ACTEMRA [Suspect]
     Route: 041
     Dates: start: 20090114, end: 20090114
  7. ACTEMRA [Suspect]
     Route: 041
     Dates: start: 20090206, end: 20090206
  8. ACTEMRA [Suspect]
     Route: 041
     Dates: start: 20100306, end: 20100406
  9. ACTEMRA [Suspect]
     Route: 041
     Dates: start: 20100403, end: 20100403
  10. RHEUMATREX [Suspect]
     Indication: RHEUMATOID ARTHRITIS
     Route: 048
  11. PREDNISOLONE [Suspect]
     Indication: RHEUMATOID ARTHRITIS
     Route: 048
     Dates: end: 20090113
  12. PREDNISOLONE [Suspect]
     Route: 048
     Dates: start: 20090114, end: 20090205
  13. PREDNISOLONE [Suspect]
     Route: 048
     Dates: start: 20090206, end: 20090305
  14. PREDNISOLONE [Suspect]
     Route: 048
     Dates: start: 20090307, end: 20090807
  15. PREDNISOLONE [Suspect]
     Route: 048
     Dates: start: 20090808
  16. RIMATIL [Concomitant]
     Route: 048
     Dates: start: 20080229
  17. ISCOTIN [Concomitant]
     Dosage: FORMULATION: PERORAL AGENT
     Route: 048
     Dates: start: 20080802
  18. LOXONIN [Concomitant]
     Dosage: FORMULATION: PERORAL AGENT
     Route: 048
  19. MUCOSTA [Concomitant]
     Dosage: FORMULATION: PERORAL AGENT
     Route: 048
  20. TAKEPRON [Concomitant]
     Route: 048
  21. SEIBULE [Concomitant]
     Dosage: DRUG: SEIBULE (MIGLITOL)
     Route: 048
  22. SEIBULE [Concomitant]
     Dosage: FORM: TAPE, DRUG: SELTOUCH(FELBINAC)
     Route: 061
  23. FELBINAC [Concomitant]
     Dosage: DOSE FORM: OINTMENT AND CREAM
     Route: 061
  24. VOLTAREN [Concomitant]
     Dosage: DRUG: VOLTAREN (DICLOFENAC SODIUM), FORM: OINTMENT AND CREAM, DOSAGE IS UNCERTAIN.
     Route: 061

REACTIONS (3)
  - BRONCHITIS [None]
  - C-REACTIVE PROTEIN INCREASED [None]
  - SKIN CANCER [None]
